APPROVED DRUG PRODUCT: TIMENTIN IN PLASTIC CONTAINER
Active Ingredient: CLAVULANATE POTASSIUM; TICARCILLIN DISODIUM
Strength: EQ 100MG BASE/100ML;EQ 3GM BASE/100ML
Dosage Form/Route: INJECTABLE;INJECTION
Application: N050658 | Product #001
Applicant: GLAXOSMITHKLINE INTELLECTUAL PROPERTY NO 2 LTD ENGLAND
Approved: Dec 15, 1989 | RLD: No | RS: No | Type: DISCN